FAERS Safety Report 5183909-3 (Version None)
Quarter: 2006Q4

REPORT INFORMATION
  Report Type: 
  Country: None (occurrence: None)
  Receive Date: 20061220
  Receipt Date: 20060227
  Transmission Date: 20070319
  Serious: No
  Sender: FDA-Public Use
  Company Number: US-GLAXOSMITHKLINE-A0595235A

PATIENT
  Age: 55 Year
  Sex: Female

DRUGS (8)
  1. NICODERM CQ [Suspect]
     Route: 062
  2. CODEINE [Concomitant]
  3. MORPHINE [Concomitant]
  4. CLONAZEPAM [Concomitant]
  5. GEMFIBROZIL [Concomitant]
  6. AMITRIPTYLINE HCL [Concomitant]
  7. RANITIDINE [Concomitant]
  8. IBUPROFEN [Concomitant]

REACTIONS (2)
  - DRUG INEFFECTIVE [None]
  - NICOTINE DEPENDENCE [None]
